FAERS Safety Report 10170567 (Version 1)
Quarter: 2014Q2

REPORT INFORMATION
  Report Type: Spontaneous
  Country: CN (occurrence: CN)
  Receive Date: 20140513
  Receipt Date: 20140513
  Transmission Date: 20141212
  Serious: Yes (Life-Threatening)
  Sender: FDA-Public Use
  Company Number: PHHY2014CN057865

PATIENT
  Age: 62 Year
  Sex: Female

DRUGS (1)
  1. MIACALCIC [Suspect]
     Indication: LUMBAR SPINAL STENOSIS
     Dosage: 1 ML, QD
     Route: 030
     Dates: start: 20131213, end: 20131213

REACTIONS (2)
  - Blood pressure increased [Recovering/Resolving]
  - Dyspnoea [Recovering/Resolving]
